FAERS Safety Report 10513259 (Version 1)
Quarter: 2014Q4

REPORT INFORMATION
  Report Type: Spontaneous
  Country: US (occurrence: US)
  Receive Date: 20141013
  Receipt Date: 20141013
  Transmission Date: 20150528
  Serious: Yes (Other)
  Sender: FDA-Public Use
  Company Number: US-JNJFOC-20141004288

PATIENT
  Age: 20 Year
  Sex: Male

DRUGS (3)
  1. COGENTIN [Concomitant]
     Active Substance: BENZTROPINE MESYLATE
     Route: 065
  2. INVEGA [Suspect]
     Active Substance: PALIPERIDONE
     Indication: SCHIZOPHRENIA
     Route: 048
  3. LITHIUM [Concomitant]
     Active Substance: LITHIUM CARBONATE
     Route: 065

REACTIONS (2)
  - Hepatitis A virus test positive [Unknown]
  - Liver function test abnormal [Unknown]
